FAERS Safety Report 17985644 (Version 1)
Quarter: 2020Q3

REPORT INFORMATION
  Report Type: Spontaneous
  Country: GB (occurrence: GB)
  Receive Date: 20200706
  Receipt Date: 20200706
  Transmission Date: 20201103
  Serious: Yes (Other)
  Sender: FDA-Public Use
  Company Number: GB-NOVOPROD-736724

PATIENT
  Sex: Female
  Weight: 58.06 kg

DRUGS (1)
  1. VAGIFEM [Suspect]
     Active Substance: ESTRADIOL
     Indication: ATROPHY
     Dosage: 10 ?G
     Route: 067
     Dates: end: 20200609

REACTIONS (4)
  - Abdominal pain lower [Unknown]
  - Vulvovaginal pain [Unknown]
  - Hypokinesia [Unknown]
  - Abdominal pain upper [Recovering/Resolving]

NARRATIVE: CASE EVENT DATE: 20200609
